FAERS Safety Report 6258334-4 (Version None)
Quarter: 2009Q3

REPORT INFORMATION
  Report Type: 
  Country: None (occurrence: None)
  Receive Date: 20090707
  Receipt Date: 20090629
  Transmission Date: 20100115
  Serious: Yes (Hospitalization)
  Sender: FDA-Public Use
  Company Number: PHHO2009IL07974

PATIENT
  Sex: Male
  Weight: 92 kg

DRUGS (1)
  1. RAD 666 RAD++PTR [Suspect]
     Indication: RENAL TRANSPLANT
     Dosage: OPEN-LABEL
     Route: 048
     Dates: start: 20080526, end: 20090319

REACTIONS (1)
  - KIDNEY TRANSPLANT REJECTION [None]
